FAERS Safety Report 4788269-5 (Version None)
Quarter: 2005Q4

REPORT INFORMATION
  Report Type: 
  Country: None (occurrence: None)
  Receive Date: 20051003
  Receipt Date: 20050708
  Transmission Date: 20060501
  Serious: Yes (Other)
  Sender: FDA-Public Use
  Company Number: 2005099374

PATIENT
  Sex: Female

DRUGS (3)
  1. DILANTIN [Suspect]
     Indication: CONVULSION PROPHYLAXIS
  2. TRILEPTAL [Suspect]
     Indication: ILL-DEFINED DISORDER
     Dates: start: 20040301, end: 20050202
  3. KEPPRA [Suspect]
     Indication: ILL-DEFINED DISORDER
     Dates: start: 20040301, end: 20050202

REACTIONS (10)
  - ANTICONVULSANT DRUG LEVEL INCREASED [None]
  - ASTHENIA [None]
  - BURNING SENSATION [None]
  - CONVULSION [None]
  - DRUG LEVEL FLUCTUATING [None]
  - DRY MOUTH [None]
  - EYE IRRITATION [None]
  - GINGIVAL SWELLING [None]
  - HYPOAESTHESIA [None]
  - TOOTH DISORDER [None]
